FAERS Safety Report 6240833-2 (Version None)
Quarter: 2009Q2

REPORT INFORMATION
  Report Type: 
  Country: None (occurrence: None)
  Receive Date: 20090623
  Receipt Date: 20090611
  Transmission Date: 20091009
  Serious: Yes (Other)
  Sender: FDA-Public Use
  Company Number: US-ELI_LILLY_AND_COMPANY-US200903000888

PATIENT
  Sex: Female
  Weight: 74.376 kg

DRUGS (3)
  1. EVISTA [Suspect]
     Indication: OSTEOPENIA
     Dosage: 60 MG, UNKNOWN
     Route: 048
     Dates: start: 20080207, end: 20090302
  2. PROGESTERONE [Concomitant]
     Dosage: UNK, UNKNOWN
     Route: 065
  3. TESTOSTERONE [Concomitant]
     Dosage: UNK, UNKNOWN
     Route: 065

REACTIONS (1)
  - OSTEONECROSIS [None]
